FAERS Safety Report 6191213-X (Version None)
Quarter: 2009Q2

REPORT INFORMATION
  Report Type: 
  Country: None (occurrence: None)
  Receive Date: 20090515
  Receipt Date: 20090506
  Transmission Date: 20091009
  Serious: Yes (Other)
  Sender: FDA-Public Use
  Company Number: US-BAXTER-2009BH008150

PATIENT
  Age: 3 Year
  Sex: Male

DRUGS (1)
  1. ADVATE [Suspect]
     Indication: FACTOR VIII DEFICIENCY
     Route: 065
     Dates: start: 20060101

REACTIONS (1)
  - FALL [None]
